FAERS Safety Report 4682027-8 (Version None)
Quarter: 2005Q2

REPORT INFORMATION
  Report Type: 
  Country: None (occurrence: None)
  Receive Date: 20050606
  Receipt Date: 20050525
  Transmission Date: 20051028
  Serious: Yes (Other)
  Sender: FDA-Public Use
  Company Number: NSADSS2002021681

PATIENT
  Age: 41 Year
  Sex: Female
  Weight: 51 kg

DRUGS (7)
  1. REMICADE [Suspect]
     Route: 041
     Dates: start: 20010501
  2. REMICADE [Suspect]
     Indication: RHEUMATOID ARTHRITIS
     Route: 041
     Dates: start: 20010501
  3. MTX [Suspect]
     Indication: RHEUMATOID ARTHRITIS
     Route: 049
     Dates: start: 20000101
  4. PREDNISONE [Concomitant]
     Route: 049
  5. DICLOFENAC [Concomitant]
     Route: 049
  6. FOLIC ACID [Concomitant]
  7. VITAMIN B-12 [Concomitant]

REACTIONS (2)
  - LEUKOENCEPHALOPATHY [None]
  - MIGRAINE [None]
